FAERS Safety Report 10242010 (Version 1)
Quarter: 2014Q2

REPORT INFORMATION
  Report Type: Spontaneous
  Country: US (occurrence: None)
  Receive Date: 20140613
  Receipt Date: 20140613
  Transmission Date: 20141212
  Serious: Yes (Other)
  Sender: FDA-Public Use
  Company Number: SYM-2014-21594

PATIENT
  Age: 62 Year
  Sex: Female

DRUGS (1)
  1. MYSOLINE [Suspect]
     Indication: GENERALISED TONIC-CLONIC SEIZURE
     Dosage: 14 IN 1 D
     Route: 048

REACTIONS (2)
  - Reaction to azo-dyes [None]
  - Petit mal epilepsy [None]
